FAERS Safety Report 9607331 (Version 5)
Quarter: 2019Q1

REPORT INFORMATION
  Report Type: Spontaneous
  Country: FR (occurrence: FR)
  Receive Date: 20131009
  Receipt Date: 20190111
  Transmission Date: 20190418
  Serious: Yes (Hospitalization, Other)
  Sender: FDA-Public Use
  Company Number: FR-AMGEN-FRASP2013070551

PATIENT
  Age: 8 Year
  Sex: Female
  Weight: 35 kg

DRUGS (3)
  1. ENBREL [Suspect]
     Active Substance: ETANERCEPT
     Indication: JUVENILE IDIOPATHIC ARTHRITIS
     Dosage: 25 MG, WEEKLY
     Route: 058
     Dates: start: 200902, end: 20101230
  2. XYZALL [Concomitant]
     Active Substance: LEVOCETIRIZINE DIHYDROCHLORIDE
     Dosage: UNK
  3. EFFERALGAN CODEINE [Concomitant]
     Active Substance: ACETAMINOPHEN\CODEINE PHOSPHATE
     Dosage: UNK

REACTIONS (10)
  - Major depression [Recovered/Resolved]
  - Negativism [Recovered/Resolved]
  - Depression [Recovered/Resolved]
  - Decreased appetite [Recovered/Resolved]
  - Regressive behaviour [Recovered/Resolved]
  - Suicidal ideation [Recovered/Resolved]
  - School refusal [Recovered/Resolved]
  - Asthenia [Recovered/Resolved]
  - Sleep disorder [Recovered/Resolved]
  - Injection site reaction [Recovered/Resolved]

NARRATIVE: CASE EVENT DATE: 200902
